FAERS Safety Report 10231497 (Version 1)
Quarter: 2014Q2

REPORT INFORMATION
  Report Type: Spontaneous
  Country: IT (occurrence: IT)
  Receive Date: 20140611
  Receipt Date: 20140611
  Transmission Date: 20141212
  Serious: Yes (Other)
  Sender: FDA-Public Use
  Company Number: IT-TEVA-487376USA

PATIENT
  Age: 30 Year
  Sex: Male

DRUGS (6)
  1. LEVACT [Suspect]
     Indication: HODGKIN^S DISEASE
     Route: 042
     Dates: start: 20131007, end: 20140108
  2. LEVACT [Suspect]
     Route: 042
     Dates: start: 20140224, end: 20140225
  3. MABTHERA [Suspect]
     Indication: HODGKIN^S DISEASE
     Dosage: 700 MG, UNK
     Route: 042
     Dates: start: 20131007, end: 20140108
  4. ACICLOVIR [Concomitant]
     Indication: ANTIVIRAL PROPHYLAXIS
     Dosage: UNK UNK, UNKNOWN FREQ.
     Route: 048
     Dates: start: 20120417, end: 20140108
  5. FLUCONAZOLE [Concomitant]
     Indication: ANTIFUNGAL PROPHYLAXIS
     Dosage: UNK UNK, UNKNOWN FREQ.
     Route: 048
     Dates: start: 20131007, end: 20140408
  6. BACTRIM [Concomitant]
     Indication: INFECTION PROPHYLAXIS
     Route: 048
     Dates: start: 20120329, end: 20140108

REACTIONS (2)
  - Hepatic enzyme increased [Recovered/Resolved]
  - Off label use [Unknown]
